FAERS Safety Report 10149909 (Version 1)
Quarter: 2014Q2

REPORT INFORMATION
  Report Type: Spontaneous
  Country: US (occurrence: None)
  Receive Date: 20140501
  Receipt Date: 20140501
  Transmission Date: 20141212
  Serious: Yes (Other)
  Sender: FDA-Public Use
  Company Number: None

PATIENT
  Age: 59 Year
  Sex: Male
  Weight: 76.2 kg

DRUGS (2)
  1. CEPHALEXIN [Suspect]
     Indication: STAPHYLOCOCCAL INFECTION
     Route: 048
     Dates: start: 20140418, end: 20140429
  2. CEPHALEXIN [Suspect]
     Indication: POST PROCEDURAL INFECTION
     Route: 048
     Dates: start: 20140418, end: 20140429

REACTIONS (6)
  - Deafness [None]
  - Deafness unilateral [None]
  - Ototoxicity [None]
  - Tinnitus [None]
  - Dizziness [None]
  - Vertigo [None]
